FAERS Safety Report 14080447 (Version 2)
Quarter: 2018Q2

REPORT INFORMATION
  Report Type: Spontaneous
  Country: US (occurrence: US)
  Receive Date: 20171012
  Receipt Date: 20180614
  Transmission Date: 20180711
  Serious: No
  Sender: FDA-Public Use
  Company Number: US-MYLANLABS-2017M1036383

PATIENT
  Sex: Female

DRUGS (3)
  1. CYCLOBENZAPRINE HYDROCHLORIDE TABLETS, USP [Suspect]
     Active Substance: CYCLOBENZAPRINE
     Dosage: 2.5 MG, HS
     Dates: start: 20170613, end: 20170614
  2. CYCLOBENZAPRINE HYDROCHLORIDE TABLETS, USP [Suspect]
     Active Substance: CYCLOBENZAPRINE
     Indication: MUSCLE SPASMS
     Dosage: 3.3 MG, HS
     Dates: start: 20170611, end: 20170611
  3. CYCLOBENZAPRINE HYDROCHLORIDE TABLETS, USP [Suspect]
     Active Substance: CYCLOBENZAPRINE
     Dosage: 1.67 MG, HS
     Dates: start: 20170612, end: 20170612

REACTIONS (2)
  - Restless legs syndrome [Recovered/Resolved]
  - Insomnia [Recovered/Resolved]

NARRATIVE: CASE EVENT DATE: 201706
